FAERS Safety Report 9705200 (Version 2)
Quarter: 2013Q4

REPORT INFORMATION
  Report Type: Spontaneous
  Country: CN (occurrence: CN)
  Receive Date: 20131122
  Receipt Date: 20131202
  Transmission Date: 20140711
  Serious: Yes (Hospitalization, Other)
  Sender: FDA-Public Use
  Company Number: CN-SA-2013SA119769

PATIENT
  Age: 72 Year
  Sex: Male

DRUGS (6)
  1. ELOXATIN [Suspect]
     Indication: SMALL INTESTINE CARCINOMA
     Dosage: 120 MG ON DAY 1 EACH CYCLE
     Route: 065
     Dates: start: 20110328, end: 20110328
  2. ELOXATIN [Suspect]
     Indication: SMALL INTESTINE CARCINOMA
     Dosage: 120 MG ON DAY 1 EACH CYCLE
     Route: 065
     Dates: start: 20110416, end: 20110416
  3. FLUOROURACIL [Suspect]
     Indication: SMALL INTESTINE CARCINOMA
     Dosage: 0.75 G ON DAY 1,2 OF EACH CYCLE
     Route: 065
     Dates: start: 20110328, end: 20110329
  4. FLUOROURACIL [Suspect]
     Indication: SMALL INTESTINE CARCINOMA
     Dosage: 0.75 G ON DAY 1,2 OF EACH CYCLE
     Route: 065
     Dates: start: 20110416, end: 20110417
  5. CALCIUM FOLINATE [Suspect]
     Indication: SMALL INTESTINE CARCINOMA
     Dosage: 300 MG ON DAY 1,2 OF EACH CYCLE
     Route: 065
     Dates: start: 20110328, end: 20110329
  6. CALCIUM FOLINATE [Suspect]
     Indication: SMALL INTESTINE CARCINOMA
     Dosage: 300 MG ON DAY 1,2 OF EACH CYCLE
     Route: 065
     Dates: start: 20110416, end: 20110417

REACTIONS (13)
  - Hepatitis fulminant [Recovered/Resolved]
  - Fatigue [Recovered/Resolved]
  - Decreased appetite [Recovered/Resolved]
  - Pyrexia [Recovered/Resolved]
  - Jaundice [Recovered/Resolved]
  - Chromaturia [Recovered/Resolved]
  - Gamma-glutamyltransferase increased [Recovered/Resolved]
  - Blood bilirubin increased [Recovered/Resolved]
  - Bilirubin conjugated increased [Recovered/Resolved]
  - Alanine aminotransferase increased [Recovered/Resolved]
  - Aspartate aminotransferase increased [Recovered/Resolved]
  - Bone marrow failure [Recovered/Resolved]
  - White blood cell count decreased [Recovered/Resolved]
